FAERS Safety Report 11130415 (Version 1)
Quarter: 2015Q2

REPORT INFORMATION
  Report Type: Spontaneous
  Country: US (occurrence: US)
  Receive Date: 20150522
  Receipt Date: 20150522
  Transmission Date: 20150821
  Serious: Yes (Hospitalization, Other)
  Sender: FDA-Public Use
  Company Number: US-PFIZER INC-2015169891

PATIENT
  Age: 95 Year
  Sex: Female

DRUGS (3)
  1. NEURONTIN [Suspect]
     Active Substance: GABAPENTIN
     Indication: PAIN IN EXTREMITY
     Dosage: 150 UNK, UNK
     Route: 048
  2. CARDIA [Concomitant]
     Active Substance: AJMALINE
  3. NEURONTIN [Suspect]
     Active Substance: GABAPENTIN
     Indication: BACK PAIN
     Dosage: 100 MG, 2X/DAY
     Route: 048

REACTIONS (8)
  - Depressed level of consciousness [Unknown]
  - Loss of consciousness [Unknown]
  - Blood potassium increased [Unknown]
  - Unresponsive to stimuli [Unknown]
  - Drug ineffective for unapproved indication [Unknown]
  - Asthenia [Unknown]
  - Fatigue [Unknown]
  - Lethargy [Unknown]
